FAERS Safety Report 9619289 (Version 1)
Quarter: 2013Q4

REPORT INFORMATION
  Report Type: Spontaneous
  Country: US (occurrence: US)
  Receive Date: 20131014
  Receipt Date: 20131014
  Transmission Date: 20140711
  Serious: No
  Sender: FDA-Public Use
  Company Number: US-BAYER-2013-123565

PATIENT
  Sex: 0

DRUGS (3)
  1. BAYER GENUINE ASPIRIN ORIGINAL STRENGTH [Suspect]
     Indication: HEADACHE
  2. ALEVE CAPLET [Suspect]
     Indication: HEADACHE
  3. IBUPROFEN [Concomitant]

REACTIONS (2)
  - Drug ineffective [None]
  - Extra dose administered [None]
